FAERS Safety Report 4546207-4 (Version None)
Quarter: 2005Q1

REPORT INFORMATION
  Report Type: 
  Country: None (occurrence: None)
  Receive Date: 20050103
  Receipt Date: 20041221
  Transmission Date: 20050727
  Serious: Yes (Other)
  Sender: FDA-Public Use
  Company Number: 2004118911

PATIENT

DRUGS (1)
  1. SULPERAZON (SULBACTAM, CEFOPERAZONE) [Suspect]
     Indication: ILL-DEFINED DISORDER
     Dosage: (1 D) , INTRAVENOUS
     Route: 042

REACTIONS (3)
  - ALANINE AMINOTRANSFERASE INCREASED [None]
  - ASPARTATE AMINOTRANSFERASE INCREASED [None]
  - LIVER DISORDER [None]
